FAERS Safety Report 7705225-5 (Version None)
Quarter: 2011Q3

REPORT INFORMATION
  Report Type: 
  Country: None (occurrence: None)
  Receive Date: 20110818
  Receipt Date: 20110808
  Transmission Date: 20111222
  Serious: Yes (Other)
  Sender: FDA-Public Use
  Company Number: 2011001422

PATIENT
  Age: 55 Year
  Sex: Female

DRUGS (2)
  1. TARCEVA [Suspect]
     Indication: LUNG NEOPLASM MALIGNANT
     Dosage: 150 MG, UID/QD, ORAL
     Route: 048
     Dates: start: 20110318, end: 20110805
  2. ANTI-CONVULSANTS (ANTI-CONVULSANTS) [Suspect]
     Indication: CONVULSION PROPHYLAXIS

REACTIONS (6)
  - HYPERCHLORHYDRIA [None]
  - CONVULSION [None]
  - NAUSEA [None]
  - FATIGUE [None]
  - DECREASED APPETITE [None]
  - BLOOD MAGNESIUM DECREASED [None]
